FAERS Safety Report 20933233 (Version 2)
Quarter: 2023Q2

REPORT INFORMATION
  Report Type: Spontaneous
  Country: BE (occurrence: None)
  Receive Date: 20220608
  Receipt Date: 20230611
  Transmission Date: 20230722
  Serious: Yes (Death, Hospitalization, Other)
  Sender: FDA-Public Use
  Company Number: BE-Merck Healthcare KGaA-9327836

PATIENT
  Age: 9 Decade
  Sex: Male
  Weight: 77 kg

DRUGS (1)
  1. AVELUMAB [Suspect]
     Active Substance: AVELUMAB
     Indication: Transitional cell carcinoma
     Dates: start: 202101, end: 202111

REACTIONS (3)
  - Disease progression [Fatal]
  - Intracranial tumour haemorrhage [Unknown]
  - Pruritus [Recovered/Resolved]

NARRATIVE: CASE EVENT DATE: 20210101
